FAERS Safety Report 5345263-3 (Version None)
Quarter: 2007Q2

REPORT INFORMATION
  Report Type: 
  Country: None (occurrence: None)
  Receive Date: 20070530
  Receipt Date: 20070530
  Transmission Date: 20071010
  Serious: Yes (Hospitalization)
  Sender: FDA-Public Use
  Company Number: None

PATIENT
  Age: 51 Year
  Sex: Female
  Weight: 45.8133 kg

DRUGS (5)
  1. LAPATINIB [Suspect]
     Indication: PANCREATIC CARCINOMA METASTATIC
     Dosage: IV 1GM/M2 WEEKLY 4/26 (25% DECREASED DOSE)
     Route: 042
     Dates: start: 20070412
  2. LAPATINIB [Suspect]
     Indication: PANCREATIC CARCINOMA METASTATIC
     Dosage: IV 1GM/M2 WEEKLY 4/26 (25% DECREASED DOSE)
     Route: 042
     Dates: start: 20070419
  3. LAPATINIB [Suspect]
     Indication: PANCREATIC CARCINOMA METASTATIC
     Dosage: IV 1GM/M2 WEEKLY 4/26 (25% DECREASED DOSE)
     Route: 042
     Dates: start: 20070426
  4. GEMCITABINE [Suspect]
     Indication: PANCREATIC CARCINOMA METASTATIC
     Dosage: 1500MG PO DAILY (4/30 25% DECREASE)
     Route: 048
     Dates: start: 20070412, end: 20070425
  5. GEMCITABINE [Suspect]
     Indication: PANCREATIC CARCINOMA METASTATIC
     Dosage: 1500MG PO DAILY (4/30 25% DECREASE)
     Route: 048
     Dates: start: 20070426, end: 20070430

REACTIONS (3)
  - DEHYDRATION [None]
  - GASTROENTERITIS [None]
  - NAUSEA [None]
